FAERS Safety Report 18462061 (Version 1)
Quarter: 2020Q4

REPORT INFORMATION
  Report Type: Spontaneous
  Country: US (occurrence: US)
  Receive Date: 20201103
  Receipt Date: 20201103
  Transmission Date: 20210114
  Serious: Yes (Hospitalization)
  Sender: FDA-Public Use
  Company Number: None

PATIENT
  Age: 47 Year
  Sex: Female

DRUGS (1)
  1. XARELTO [Suspect]
     Active Substance: RIVAROXABAN
     Route: 048
     Dates: start: 20200526, end: 20201029

REACTIONS (3)
  - Dyspnoea [None]
  - Therapy cessation [None]
  - Deep vein thrombosis [None]

NARRATIVE: CASE EVENT DATE: 20201029
